FAERS Safety Report 7669728-4 (Version None)
Quarter: 2011Q3

REPORT INFORMATION
  Report Type: 
  Country: None (occurrence: None)
  Receive Date: 20110808
  Receipt Date: 20110801
  Transmission Date: 20111222
  Serious: Yes (Other)
  Sender: FDA-Public Use
  Company Number: AU-PFIZER INC-2011175999

PATIENT
  Age: 21 Year
  Sex: Male

DRUGS (4)
  1. PREDNISOLONE [Suspect]
     Dosage: 30 MG, UNK
  2. METHYLPREDNISOLONE [Suspect]
     Dosage: 1 G, UNK
     Route: 042
  3. CYCLOPHOSPHAMIDE [Suspect]
     Dosage: 12 G TOTAL
     Route: 042
  4. RITUXIMAB [Suspect]
     Dosage: 375 MG/M2, UNK

REACTIONS (1)
  - POSTERIOR REVERSIBLE ENCEPHALOPATHY SYNDROME [None]
